FAERS Safety Report 4332072-7 (Version None)
Quarter: 2004Q2

REPORT INFORMATION
  Report Type: 
  Country: None (occurrence: None)
  Receive Date: 20040405
  Receipt Date: 20040308
  Transmission Date: 20050107
  Serious: Yes (Other)
  Sender: FDA-Public Use
  Company Number: US-ROCHE-361369

PATIENT
  Age: 20 Year
  Sex: Female
  Weight: 50.3 kg

DRUGS (3)
  1. PEGASYS [Suspect]
     Indication: HEPATITIS C
     Route: 058
     Dates: start: 20030806, end: 20040123
  2. COPEGUS [Concomitant]
     Indication: HEPATITIS C
     Route: 048
     Dates: start: 20030806, end: 20040130
  3. SERZONE [Concomitant]

REACTIONS (1)
  - FACIAL PALSY [None]
